FAERS Safety Report 8443570-9 (Version None)
Quarter: 2012Q2

REPORT INFORMATION
  Report Type: 
  Country: None (occurrence: None)
  Receive Date: 20120618
  Receipt Date: 20120615
  Transmission Date: 20120825
  Serious: No
  Sender: FDA-Public Use
  Company Number: US-PFIZER INC-2012145198

PATIENT
  Sex: Male
  Weight: 116 kg

DRUGS (2)
  1. LYRICA [Suspect]
     Indication: NERVE INJURY
     Dosage: 200 MG, DAILY
     Route: 048
     Dates: start: 20120614
  2. IBUPROFEN [Concomitant]
     Indication: PAIN
     Dosage: 400 MG, AS NEEDED

REACTIONS (1)
  - DIZZINESS [None]
